FAERS Safety Report 6872291-9 (Version None)
Quarter: 2010Q3

REPORT INFORMATION
  Report Type: 
  Country: None (occurrence: None)
  Receive Date: 20100723
  Receipt Date: 20100713
  Transmission Date: 20110219
  Serious: Yes (Hospitalization, Other)
  Sender: FDA-Public Use
  Company Number: US-ABBOTT-10P-163-0629577-00

PATIENT
  Sex: Female
  Weight: 69.916 kg

DRUGS (35)
  1. HUMIRA [Suspect]
     Indication: COLITIS ULCERATIVE
     Route: 058
     Dates: start: 20080403, end: 20091110
  2. METFORMIN HCL [Concomitant]
     Indication: DIABETES MELLITUS
     Dates: start: 20070101
  3. METHOTREXATE [Concomitant]
     Indication: COLITIS ULCERATIVE
     Route: 048
     Dates: start: 20080101, end: 20080101
  4. UNKNOWN CANCER DRIP MEDICATION [Concomitant]
     Indication: COLITIS ULCERATIVE
  5. PREDNISONE [Concomitant]
     Indication: COLITIS ULCERATIVE
     Dosage: USING MEDICATION OFF AND ON
     Dates: end: 20091103
  6. CANASA SUPPOSITORIES [Concomitant]
     Indication: COLITIS ULCERATIVE
     Route: 054
     Dates: end: 20090101
  7. AMITRIPTYLINE HYDROCHLORIDE [Concomitant]
     Indication: FIBROMYALGIA
  8. AMITRIPTYLINE HYDROCHLORIDE [Concomitant]
     Indication: INSOMNIA
  9. VICODIN [Concomitant]
     Indication: FIBROMYALGIA
     Dosage: 7.5MG/750MG, AS NEEDED
  10. VICODIN [Concomitant]
     Indication: PAIN
  11. KLONOPIN [Concomitant]
     Indication: ANXIETY
  12. XANAX [Concomitant]
     Indication: DEPRESSION
  13. ZANAFLEX [Concomitant]
     Indication: MYALGIA
     Dosage: 3 TO 6 PILLS DAILY, AS NEEDED
     Route: 048
  14. ZANAFLEX [Concomitant]
     Indication: OEDEMA PERIPHERAL
  15. ZANAFLEX [Concomitant]
     Indication: FIBROMYALGIA
  16. LIALDA [Concomitant]
     Indication: FIBROMYALGIA
     Route: 048
     Dates: start: 20100101
  17. ADVAIR DISKUS 100/50 [Concomitant]
     Indication: ASTHMA
  18. ACE INHIBITOR NOS [Concomitant]
     Indication: PRODUCT USED FOR UNKNOWN INDICATION
  19. LISINOPRIL [Concomitant]
     Indication: PRODUCT USED FOR UNKNOWN INDICATION
     Dosage: DAILY
  20. LISINOPRIL [Concomitant]
     Dosage: DAILY
  21. DIOVAN [Concomitant]
     Indication: PRODUCT USED FOR UNKNOWN INDICATION
  22. HYDRODORE [Concomitant]
     Indication: PRODUCT USED FOR UNKNOWN INDICATION
  23. ALPRAZELAM [Concomitant]
     Indication: PRODUCT USED FOR UNKNOWN INDICATION
  24. TIZAIDIZE [Concomitant]
     Indication: PRODUCT USED FOR UNKNOWN INDICATION
  25. LEVSIN [Concomitant]
     Indication: PRODUCT USED FOR UNKNOWN INDICATION
  26. METOPROLOL SUCCINATE [Concomitant]
     Indication: PRODUCT USED FOR UNKNOWN INDICATION
  27. GLUCOPHAGE [Concomitant]
     Indication: PRODUCT USED FOR UNKNOWN INDICATION
  28. METROPOLYN [Concomitant]
     Indication: PRODUCT USED FOR UNKNOWN INDICATION
  29. NITROGLYCERIN [Concomitant]
     Indication: PRODUCT USED FOR UNKNOWN INDICATION
  30. LOPRESSOR [Concomitant]
     Indication: PALPITATIONS
  31. ADVAIR DISKUS 100/50 [Concomitant]
     Indication: PRODUCT USED FOR UNKNOWN INDICATION
     Dosage: 250/50, 1 PUFF, BID
  32. PROVENTIL [Concomitant]
     Indication: PRODUCT USED FOR UNKNOWN INDICATION
  33. DIPHENOXYLATE [Concomitant]
     Indication: PRODUCT USED FOR UNKNOWN INDICATION
  34. SIMVASTATIN [Concomitant]
     Indication: PRODUCT USED FOR UNKNOWN INDICATION
  35. ASACOL [Concomitant]
     Indication: COLITIS ULCERATIVE

REACTIONS (33)
  - ABASIA [None]
  - ABDOMINAL PAIN LOWER [None]
  - ANAEMIA [None]
  - ANAL STENOSIS [None]
  - ASTHENIA [None]
  - ASTHMA [None]
  - ATELECTASIS [None]
  - BACK PAIN [None]
  - BLOOD CREATINE PHOSPHOKINASE INCREASED [None]
  - BLOOD GLUCOSE INCREASED [None]
  - BREAST PAIN [None]
  - CHEST PAIN [None]
  - COLITIS ULCERATIVE [None]
  - COUGH [None]
  - DIARRHOEA [None]
  - DYSURIA [None]
  - FALL [None]
  - FATIGUE [None]
  - FREQUENT BOWEL MOVEMENTS [None]
  - HAEMATOCHEZIA [None]
  - HYPERSOMNIA [None]
  - HYPERTENSION [None]
  - LEUKOCYTOSIS [None]
  - LIPIDS INCREASED [None]
  - MALNUTRITION [None]
  - NIGHT SWEATS [None]
  - OROPHARYNGEAL PAIN [None]
  - PHARYNGITIS [None]
  - PNEUMONIA [None]
  - PROCTALGIA [None]
  - PYREXIA [None]
  - RECTAL HAEMORRHAGE [None]
  - RHABDOMYOLYSIS [None]
